FAERS Safety Report 7962318-5 (Version None)
Quarter: 2011Q4

REPORT INFORMATION
  Report Type: 
  Country: None (occurrence: None)
  Receive Date: 20111207
  Receipt Date: 20111130
  Transmission Date: 20120403
  Serious: No
  Sender: FDA-Public Use
  Company Number: US-B.I. PHARMACEUTICALS,INC./RIDGEFIELD-2011-BP-27128BP

PATIENT
  Sex: Male

DRUGS (6)
  1. SYNTHROID [Concomitant]
     Dosage: 225 MCG
     Route: 048
     Dates: end: 20111111
  2. PRADAXA [Suspect]
     Indication: ATRIAL FIBRILLATION
     Dosage: 300 MG
     Route: 048
     Dates: start: 20110501
  3. AVODART [Concomitant]
     Indication: PROSTATOMEGALY
     Dosage: 0.5 MG
     Route: 048
  4. TOPROL-XL [Concomitant]
     Indication: HYPERTENSION
     Dosage: 100 MG
     Route: 048
  5. TRIBENZOR [Concomitant]
     Indication: HYPERTENSION
     Route: 048
     Dates: start: 20111112
  6. SYNTHROID [Concomitant]
     Indication: HYPOTHYROIDISM
     Dosage: 200 MCG
     Route: 048
     Dates: start: 20111112

REACTIONS (2)
  - DYSPEPSIA [None]
  - BLOOD THYROID STIMULATING HORMONE DECREASED [None]
